FAERS Safety Report 20095174 (Version 1)
Quarter: 2021Q4

REPORT INFORMATION
  Report Type: Spontaneous
  Country: None (occurrence: US)
  Receive Date: 20211122
  Receipt Date: 20211122
  Transmission Date: 20220303
  Serious: No
  Sender: FDA-Public Use
  Company Number: US-Ajanta Pharma USA Inc.-2122116

PATIENT
  Age: 76 Year
  Sex: Male
  Weight: 72.727 kg

DRUGS (3)
  1. CLOMIPRAMINE HYDROCHLORIDE [Suspect]
     Active Substance: CLOMIPRAMINE HYDROCHLORIDE
     Indication: Obsessive-compulsive disorder
     Route: 048
     Dates: start: 20210603
  2. LOSARTAN [Concomitant]
     Active Substance: LOSARTAN
  3. ATORVASTATIN CALCIUM [Concomitant]
     Active Substance: ATORVASTATIN CALCIUM

REACTIONS (2)
  - Diarrhoea [Recovered/Resolved]
  - Ejaculation failure [Recovered/Resolved]

NARRATIVE: CASE EVENT DATE: 20210601
